FAERS Safety Report 13629843 (Version 1)
Quarter: 2017Q2

REPORT INFORMATION
  Report Type: Spontaneous
  Country: US (occurrence: US)
  Receive Date: 20170608
  Receipt Date: 20170608
  Transmission Date: 20170830
  Serious: Yes (Hospitalization, Other)
  Sender: FDA-Public Use
  Company Number: US-ELI_LILLY_AND_COMPANY-US201705011999

PATIENT
  Sex: Male

DRUGS (8)
  1. HUMULIN N [Suspect]
     Active Substance: INSULIN HUMAN
     Dosage: 30 U, TID
     Route: 058
     Dates: start: 1997
  2. HUMULIN R [Suspect]
     Active Substance: INSULIN HUMAN
     Indication: TYPE 1 DIABETES MELLITUS
     Dosage: UNK, UNKNOWN
     Route: 058
     Dates: start: 1997
  3. LANTUS [Suspect]
     Active Substance: INSULIN GLARGINE
     Indication: PRODUCT USED FOR UNKNOWN INDICATION
     Route: 065
  4. HUMULIN R [Suspect]
     Active Substance: INSULIN HUMAN
     Dosage: UNK, UNKNOWN
     Route: 058
  5. HUMULIN N [Suspect]
     Active Substance: INSULIN HUMAN
     Dosage: 30 U, TID
     Route: 058
     Dates: start: 1997
  6. VITAMIN B12 [Concomitant]
     Active Substance: CYANOCOBALAMIN
     Indication: PRODUCT USED FOR UNKNOWN INDICATION
     Dosage: 1 DF, QID
     Route: 065
  7. HUMULIN R [Suspect]
     Active Substance: INSULIN HUMAN
     Dosage: UNK, UNKNOWN
     Route: 058
  8. HUMULIN N [Suspect]
     Active Substance: INSULIN HUMAN
     Indication: TYPE 1 DIABETES MELLITUS
     Dosage: 30 U, TID
     Route: 058
     Dates: start: 1997

REACTIONS (19)
  - Ocular hyperaemia [Unknown]
  - Blood pressure systolic increased [Recovered/Resolved]
  - Ocular icterus [Unknown]
  - Stress [Unknown]
  - Hyperphagia [Recovered/Resolved]
  - Blood glucose decreased [Unknown]
  - Blindness transient [Recovered/Resolved]
  - Eye contusion [Unknown]
  - Glycosylated haemoglobin increased [Recovered/Resolved]
  - Blood glucose increased [Recovered/Resolved]
  - Weight decreased [Unknown]
  - Dysarthria [Recovering/Resolving]
  - Face injury [Not Recovered/Not Resolved]
  - Cerebrovascular accident [Recovering/Resolving]
  - Depression [Recovering/Resolving]
  - Headache [Unknown]
  - General physical health deterioration [Unknown]
  - Decreased appetite [Recovered/Resolved]
  - Brain injury [Unknown]

NARRATIVE: CASE EVENT DATE: 1998
